FAERS Safety Report 9909037 (Version 1)
Quarter: 2014Q1

REPORT INFORMATION
  Report Type: Spontaneous
  Country: CA (occurrence: CA)
  Receive Date: 20140219
  Receipt Date: 20140219
  Transmission Date: 20141002
  Serious: Yes (Other)
  Sender: FDA-Public Use
  Company Number: CA-B.I. PHARMACEUTICALS,INC./RIDGEFIELD-2014-BI-06981CN

PATIENT
  Age: 59 Year
  Sex: Female
  Weight: 90.7 kg

DRUGS (11)
  1. SPIRIVA [Suspect]
     Indication: PRODUCT USED FOR UNKNOWN INDICATION
     Dosage: 36 MCG
     Route: 048
  2. ASPIRIN [Concomitant]
     Route: 065
  3. CALCIUM [Concomitant]
     Route: 065
  4. COD LIVER OIL [Concomitant]
     Route: 065
  5. COZAAR [Concomitant]
     Route: 065
  6. FLOVENT [Concomitant]
     Route: 065
  7. FUCITHALMIC VISCOUS EYE DROPS [Concomitant]
     Route: 065
  8. NOVO-HYDRAZIDE [Concomitant]
     Route: 065
  9. PROBIOTIC [Concomitant]
     Route: 065
  10. SALBUTAMOL [Concomitant]
     Route: 065
  11. VITALUX [Concomitant]
     Route: 065

REACTIONS (6)
  - Conjunctivitis [Recovered/Resolved]
  - Vision blurred [Recovered/Resolved]
  - Fatigue [Recovered/Resolved]
  - Skin exfoliation [Recovered/Resolved]
  - Urticaria [Recovered/Resolved]
  - Dry skin [Recovered/Resolved]
